FAERS Safety Report 8174548-0 (Version None)
Quarter: 2012Q1

REPORT INFORMATION
  Report Type: 
  Country: None (occurrence: None)
  Receive Date: 20120229
  Receipt Date: 20120223
  Transmission Date: 20120608
  Serious: Yes (Other)
  Sender: FDA-Public Use
  Company Number: AU-PFIZER INC-2012050054

PATIENT
  Sex: Female

DRUGS (2)
  1. PRISTIQ [Suspect]
     Dosage: 100 MG
  2. PRISTIQ [Suspect]
     Dosage: 50 MG

REACTIONS (8)
  - ABDOMINAL PAIN [None]
  - HYPERAESTHESIA [None]
  - AGITATION [None]
  - DRUG WITHDRAWAL SYNDROME [None]
  - PANIC ATTACK [None]
  - MUSCLE SPASMS [None]
  - DYSPNOEA [None]
  - PARAESTHESIA [None]
